FAERS Safety Report 6184861-4 (Version None)
Quarter: 2009Q2

REPORT INFORMATION
  Report Type: 
  Country: None (occurrence: None)
  Receive Date: 20090508
  Receipt Date: 20090425
  Transmission Date: 20091009
  Serious: Yes (Other)
  Sender: FDA-Public Use
  Company Number: AU-GENENTECH-282543

PATIENT
  Sex: Female
  Weight: 78 kg

DRUGS (2)
  1. XOLAIR [Suspect]
     Indication: ASTHMA
  2. PREDNISOLONE [Concomitant]
     Indication: DRUG USE FOR UNKNOWN INDICATION

REACTIONS (1)
  - ASTHMA [None]
